FAERS Safety Report 8880771 (Version 3)
Quarter: 2013Q4

REPORT INFORMATION
  Report Type: Spontaneous
  Country: GB (occurrence: GB)
  Receive Date: 20121101
  Receipt Date: 20131028
  Transmission Date: 20140711
  Serious: Yes (Death)
  Sender: FDA-Public Use
  Company Number: GB-GLAXOSMITHKLINE-B0840242A

PATIENT
  Age: 42 Year
  Sex: Female

DRUGS (9)
  1. TYVERB [Suspect]
     Indication: BREAST CANCER METASTATIC
     Dosage: 1250MG PER DAY
     Route: 048
     Dates: start: 20120606, end: 20120606
  2. AUGMENTIN [Suspect]
     Indication: UPPER RESPIRATORY TRACT INFECTION
     Dosage: 1875MG PER DAY
     Route: 048
     Dates: start: 20120623, end: 20120629
  3. LANSOPRAZOLE [Concomitant]
     Indication: GASTROOESOPHAGEAL REFLUX DISEASE
     Route: 048
  4. RAMIPRIL [Concomitant]
     Indication: LEFT VENTRICULAR FAILURE
     Dosage: 10MG PER DAY
     Route: 048
  5. CARVEDILOL [Concomitant]
     Indication: LEFT VENTRICULAR FAILURE
     Dosage: 25MG PER DAY
     Route: 048
  6. FUROSEMIDE [Concomitant]
     Indication: LEFT VENTRICULAR FAILURE
     Dosage: 20MG PER DAY
     Route: 048
  7. METOCLOPRAMIDE [Concomitant]
     Indication: NAUSEA
     Route: 048
  8. ONDANSETRON [Concomitant]
     Indication: NAUSEA
     Route: 048
  9. CAPECITABINE [Concomitant]

REACTIONS (2)
  - Acute hepatic failure [Fatal]
  - Cholestasis [Not Recovered/Not Resolved]
